FAERS Safety Report 11455702 (Version 2)
Quarter: 2015Q3

REPORT INFORMATION
  Report Type: Spontaneous
  Country: US (occurrence: US)
  Receive Date: 20150903
  Receipt Date: 20150917
  Transmission Date: 20151125
  Serious: Yes (Other)
  Sender: FDA-Public Use
  Company Number: US-BEH-2015051331

PATIENT
  Age: 47 Year
  Sex: Female
  Weight: 89 kg

DRUGS (21)
  1. FLONASE [Concomitant]
     Active Substance: FLUTICASONE PROPIONATE
     Dosage: 1 INH TWICE A DAY
  2. LIDOCAINE. [Concomitant]
     Active Substance: LIDOCAINE
     Dosage: AS DIRECTED
     Route: 042
  3. PROTONIX [Concomitant]
     Active Substance: PANTOPRAZOLE SODIUM
     Dosage: 1 TAB DAILY
     Route: 048
  4. MAXALT [Concomitant]
     Active Substance: RIZATRIPTAN BENZOATE
     Dosage: 1 TAB AS NEEDED
     Route: 048
  5. SINGULAIR [Concomitant]
     Active Substance: MONTELUKAST SODIUM
     Route: 048
  6. VENTOLIN [Concomitant]
     Active Substance: ALBUTEROL SULFATE
     Dosage: 1 INH AS NEEDED
  7. PHENERGAN [Concomitant]
     Active Substance: PROMETHAZINE HYDROCHLORIDE
     Dosage: 25 MG EVERY 6 HOURS AS NEEDED
     Route: 048
  8. MIRALAX [Concomitant]
     Active Substance: POLYETHYLENE GLYCOL 3350
     Dosage: 1 CAPSULE DAILY
     Route: 048
  9. HYDROCHLORTHIAZIDE [Concomitant]
     Active Substance: HYDROCHLOROTHIAZIDE
     Route: 048
  10. FLEXERIL [Concomitant]
     Active Substance: CYCLOBENZAPRINE HYDROCHLORIDE
     Dosage: 1 TAB 4 TIMES DAILY
     Route: 048
  11. SYMBICORT [Concomitant]
     Active Substance: BUDESONIDE\FORMOTEROL FUMARATE DIHYDRATE
     Dosage: 1 INH TWICE A DAY
  12. VALIUM [Concomitant]
     Active Substance: DIAZEPAM
     Dosage: 1 TAB 4 TIMES A DAY AS NEEDED
     Route: 048
  13. BENTYL [Concomitant]
     Active Substance: DICYCLOMINE HYDROCHLORIDE
     Dosage: 1 CAP DAILY
     Route: 048
  14. SODIUM CHLORIDE. [Concomitant]
     Active Substance: SODIUM CHLORIDE
     Route: 042
  15. EPIPEN [Concomitant]
     Active Substance: EPINEPHRINE
     Indication: ANAPHYLACTIC REACTION
     Route: 030
  16. ZYRTEC [Concomitant]
     Active Substance: CETIRIZINE HYDROCHLORIDE
     Dosage: 1 TAB DAILY
     Route: 048
  17. OPANA [Concomitant]
     Active Substance: OXYMORPHONE HYDROCHLORIDE
     Dosage: 1 TAB TWICE A DAY
     Route: 048
  18. ZEMAIRA [Suspect]
     Active Substance: .ALPHA.1-PROTEINASE INHIBITOR HUMAN
     Indication: ALPHA-1 ANTI-TRYPSIN DEFICIENCY
     Route: 042
     Dates: start: 20150514
  19. DIPHENHYDRAMINE. [Concomitant]
     Active Substance: DIPHENHYDRAMINE
     Indication: ANAPHYLACTIC REACTION
     Route: 048
  20. ALBUTEROL. [Concomitant]
     Active Substance: ALBUTEROL
     Dosage: 1 VIAL AS NEEDED
  21. OXYCODONE [Concomitant]
     Active Substance: OXYCODONE
     Dosage: 1 TAB AS NEEDED
     Route: 048

REACTIONS (8)
  - Anaphylactic reaction [Unknown]
  - Blindness transient [Unknown]
  - Dyspnoea [Unknown]
  - Shock [Unknown]
  - Cough [Unknown]
  - Pruritus [Unknown]
  - Arthralgia [Unknown]
  - Myalgia [Unknown]

NARRATIVE: CASE EVENT DATE: 20150516
